FAERS Safety Report 8647018 (Version 2)
Quarter: 2012Q4

REPORT INFORMATION
  Report Type: 
  Country: US (occurrence: US)
  Receive Date: 20120703
  Receipt Date: 20121022
  Transmission Date: 20130627
  Serious: Yes (Other)
  Sender: FDA-Public Use
  Company Number: PHEH2012US012750

PATIENT
  Sex: Male

DRUGS (3)
  1. ZELNORM [Suspect]
     Indication: GASTROINTESTINAL DISORDER
     Dosage: 6 mg, UNK
  2. ZELNORM [Suspect]
     Dosage: 1mg or 2mg
     Dates: start: 2002
  3. NORTRIPTYLINE [Suspect]
     Indication: MIGRAINE
     Dosage: 25 mg, per day

REACTIONS (2)
  - Colonic pseudo-obstruction [Unknown]
  - Abdominal discomfort [Unknown]
